FAERS Safety Report 20524234 (Version 1)
Quarter: 2022Q1

REPORT INFORMATION
  Report Type: Report from Study
  Country: CA (occurrence: CA)
  Receive Date: 20220228
  Receipt Date: 20220228
  Transmission Date: 20220423
  Serious: Yes (Disabling, Other)
  Sender: FDA-Public Use
  Company Number: CA-SA-2020SA168483

PATIENT
  Age: 23 Year
  Sex: Male

DRUGS (9)
  1. DUPILUMAB [Suspect]
     Active Substance: DUPILUMAB
     Indication: Dermatitis atopic
     Dosage: 600 MG, 1X
     Route: 058
     Dates: start: 20190918, end: 20190918
  2. DUPILUMAB [Suspect]
     Active Substance: DUPILUMAB
     Dosage: 300 MG, QOW
     Route: 058
  3. RISPERIDONE [Concomitant]
     Active Substance: RISPERIDONE
     Dosage: 0.25 MG BID AND 0.50MG HS
  4. PANTOPRAZOLE MAGNESIUM [Concomitant]
     Active Substance: PANTOPRAZOLE MAGNESIUM
     Dosage: 40 MG, QD
  5. CELECOXIB [Concomitant]
     Active Substance: CELECOXIB
     Dosage: 40 MG, QD
  6. CORTICOSTEROID NOS [Concomitant]
     Active Substance: CORTICOSTEROID NOS
     Dosage: UNK UNK, QD
     Route: 061
  7. BETADERM [Concomitant]
     Active Substance: BETAMETHASONE VALERATE
     Dosage: UNK UNK, QD
  8. TYLENOL [Concomitant]
     Active Substance: ACETAMINOPHEN
  9. CELECOXIB [Concomitant]
     Active Substance: CELECOXIB

REACTIONS (10)
  - Blindness [Not Recovered/Not Resolved]
  - Walking aid user [Unknown]
  - Strabismus [Unknown]
  - Nausea [Unknown]
  - Eye disorder [Unknown]
  - Burning sensation [Recovered/Resolved]
  - Eye pruritus [Unknown]
  - Drug ineffective [Unknown]
  - Dermatitis atopic [Recovered/Resolved]
  - Dry eye [Unknown]

NARRATIVE: CASE EVENT DATE: 20210101
